FAERS Safety Report 6830553-5 (Version None)
Quarter: 2010Q3

REPORT INFORMATION
  Report Type: 
  Country: None (occurrence: None)
  Receive Date: 20100712
  Receipt Date: 20100630
  Transmission Date: 20110219
  Serious: Yes (Other)
  Sender: FDA-Public Use
  Company Number: US-JNJFOC-20100701196

PATIENT
  Sex: Female

DRUGS (8)
  1. SIMPONI [Suspect]
     Indication: RHEUMATOID ARTHRITIS
     Route: 058
  2. SIMPONI [Suspect]
     Route: 058
  3. PROTONIX [Concomitant]
  4. PLAQUENIL [Concomitant]
  5. IBUPROFEN [Concomitant]
  6. BACLOFEN [Concomitant]
  7. TRAZODONE [Concomitant]
  8. ENBREL [Concomitant]
     Indication: RHEUMATOID ARTHRITIS

REACTIONS (1)
  - DRUG ERUPTION [None]
